FAERS Safety Report 7070887-5 (Version None)
Quarter: 2010Q4

REPORT INFORMATION
  Report Type: 
  Country: None (occurrence: None)
  Receive Date: 20101021
  Receipt Date: 20101006
  Transmission Date: 20110411
  Serious: Yes (Other)
  Sender: FDA-Public Use
  Company Number: 020091

PATIENT
  Sex: Female

DRUGS (2)
  1. CIMZIA [Suspect]
     Indication: CROHN'S DISEASE
     Dosage: (SUBCUTANEOUS)
     Route: 058
     Dates: start: 20081218
  2. LYRICA [Concomitant]

REACTIONS (5)
  - CONVULSION [None]
  - FATIGUE [None]
  - FREQUENT BOWEL MOVEMENTS [None]
  - INSOMNIA [None]
  - PAIN [None]
